FAERS Safety Report 25321909 (Version 1)
Quarter: 2025Q2

REPORT INFORMATION
  Report Type: Spontaneous
  Country: US (occurrence: US)
  Receive Date: 20250516
  Receipt Date: 20250516
  Transmission Date: 20250716
  Serious: Yes (Disabling)
  Sender: AMGEN
  Company Number: US-AMGEN-USASP2025091682

PATIENT
  Sex: Female

DRUGS (1)
  1. XGEVA [Suspect]
     Active Substance: DENOSUMAB
     Indication: Bone disorder
     Dosage: UNK UNK, Q2MO
     Route: 065
     Dates: end: 202410

REACTIONS (10)
  - Osteomyelitis [Recovering/Resolving]
  - Osteonecrosis of jaw [Recovering/Resolving]
  - Arthralgia [Recovering/Resolving]
  - Tooth impacted [Recovering/Resolving]
  - Hypoaesthesia oral [Recovering/Resolving]
  - Nerve injury [Recovering/Resolving]
  - Paraesthesia oral [Recovering/Resolving]
  - Oral discomfort [Recovering/Resolving]
  - Gastrooesophageal reflux disease [Recovering/Resolving]
  - Off label use [Unknown]

NARRATIVE: CASE EVENT DATE: 20241001
